FAERS Safety Report 8196500-1 (Version None)
Quarter: 2012Q1

REPORT INFORMATION
  Report Type: 
  Country: None (occurrence: None)
  Receive Date: 20120309
  Receipt Date: 20120227
  Transmission Date: 20120608
  Serious: Yes (Hospitalization)
  Sender: FDA-Public Use
  Company Number: CA-COVIDIEN/TYCO HEALTHCARE/MALLINCKRODT-T201200761

PATIENT
  Age: 73 Year
  Sex: Male

DRUGS (1)
  1. SODIUM IODIDE I 131 [Suspect]
     Indication: PRODUCT USED FOR UNKNOWN INDICATION
     Route: 065

REACTIONS (6)
  - EJECTION FRACTION DECREASED [None]
  - ELECTROCARDIOGRAM ST SEGMENT ELEVATION [None]
  - DYSPNOEA [None]
  - HYPERTHYROIDISM [None]
  - THYROXINE FREE INCREASED [None]
  - CARDIOMYOPATHY [None]
